FAERS Safety Report 5152047-8 (Version None)
Quarter: 2006Q4

REPORT INFORMATION
  Report Type: 
  Country: None (occurrence: None)
  Receive Date: 20061113
  Receipt Date: 20061113
  Transmission Date: 20070319
  Serious: Yes (Death, Hospitalization)
  Sender: FDA-Public Use
  Company Number: None

PATIENT
  Age: 40 Year
  Sex: Female
  Weight: 76.2043 kg

DRUGS (7)
  1. CETUXIMAB [Suspect]
     Indication: BREAST CANCER METASTATIC
     Dosage: 250MG  WEEKLY   IV
     Route: 042
     Dates: start: 20060801, end: 20061001
  2. CARBOPLATIN [Suspect]
     Dosage: 450MG  ONCE A MONTH  IV
     Route: 042
     Dates: start: 20060901, end: 20061001
  3. MORPHINE [Concomitant]
  4. GABAPENTIN [Concomitant]
  5. LORAZEPAM [Concomitant]
  6. DOCUSATE SODIUM [Concomitant]
  7. LOVENOX [Concomitant]

REACTIONS (8)
  - CHEST PAIN [None]
  - LYMPHOEDEMA [None]
  - MALIGNANT NEOPLASM PROGRESSION [None]
  - MUSCULOSKELETAL PAIN [None]
  - NEOPLASM SKIN [None]
  - PAIN IN EXTREMITY [None]
  - SWELLING FACE [None]
  - THROMBOSIS [None]
